FAERS Safety Report 20624934 (Version 1)
Quarter: 2022Q1

REPORT INFORMATION
  Report Type: Spontaneous
  Country: US (occurrence: US)
  Receive Date: 20220323
  Receipt Date: 20220323
  Transmission Date: 20220424
  Serious: Yes (Death, Other)
  Sender: FDA-Public Use
  Company Number: US-JNJFOC-20220337102

PATIENT
  Age: 3 Decade
  Sex: Female

DRUGS (3)
  1. INVEGA SUSTENNA [Suspect]
     Active Substance: PALIPERIDONE PALMITATE
     Indication: Product used for unknown indication
     Route: 030
  2. INVEGA SUSTENNA [Suspect]
     Active Substance: PALIPERIDONE PALMITATE
  3. INVEGA SUSTENNA [Suspect]
     Active Substance: PALIPERIDONE PALMITATE

REACTIONS (9)
  - Death [Fatal]
  - Suicidal ideation [Unknown]
  - Mental impairment [Unknown]
  - Dyskinesia [Unknown]
  - Abnormal weight gain [Unknown]
  - Feeling abnormal [Unknown]
  - Exercise tolerance decreased [Unknown]
  - Lethargy [Unknown]
  - Gait disturbance [Unknown]
